FAERS Safety Report 12383026 (Version 2)
Quarter: 2016Q3

REPORT INFORMATION
  Report Type: Report from Study
  Country: US (occurrence: US)
  Receive Date: 20160518
  Receipt Date: 20160701
  Transmission Date: 20161109
  Serious: Yes (Other)
  Sender: FDA-Public Use
  Company Number: PHEH2016US012182

PATIENT
  Age: 75 Year
  Sex: Female

DRUGS (7)
  1. SYNTHROID [Concomitant]
     Active Substance: LEVOTHYROXINE SODIUM
     Indication: HYPOTHYROIDISM
     Dosage: 50 UG, QD
     Route: 048
  2. ATENOLOL. [Concomitant]
     Active Substance: ATENOLOL
     Indication: HYPERTENSION
     Dosage: 25 MG, BID
     Route: 048
  3. HYDROCHLOROTHIAZIDE. [Concomitant]
     Active Substance: HYDROCHLOROTHIAZIDE
     Indication: HYPERTENSION
     Dosage: 25 MG, QD
     Route: 048
  4. GLEEVEC [Suspect]
     Active Substance: IMATINIB MESYLATE
     Indication: CHRONIC MYELOID LEUKAEMIA
     Dosage: 200 MG, BID
     Route: 048
     Dates: start: 201201
  5. PREMARIN [Concomitant]
     Active Substance: ESTROGENS, CONJUGATED
     Indication: PRODUCT USED FOR UNKNOWN INDICATION
     Dosage: 0.3 MG, QD
     Route: 048
  6. GLEEVEC [Suspect]
     Active Substance: IMATINIB MESYLATE
     Dosage: BREAKING HER 400MG TABLET IN HALF TO TAKE 200MG IN THE AM AND 200MG IN THE PM)
     Route: 048
  7. CRESTOR [Concomitant]
     Active Substance: ROSUVASTATIN CALCIUM
     Indication: BLOOD CHOLESTEROL INCREASED
     Dosage: 5 MG, QD
     Route: 048

REACTIONS (14)
  - Joint injury [Recovering/Resolving]
  - Irritable bowel syndrome [Not Recovered/Not Resolved]
  - Impaired healing [Unknown]
  - Joint swelling [Unknown]
  - Diarrhoea [Not Recovered/Not Resolved]
  - Eye swelling [Recovered/Resolved]
  - Fall [Unknown]
  - Wound complication [Unknown]
  - Nausea [Not Recovered/Not Resolved]
  - Deep vein thrombosis [Recovered/Resolved]
  - Wrong technique in product usage process [Unknown]
  - Keloid scar [Not Recovered/Not Resolved]
  - Breast pain [Recovering/Resolving]
  - Skin sensitisation [Unknown]

NARRATIVE: CASE EVENT DATE: 201201
